FAERS Safety Report 14901051 (Version 1)
Quarter: 2018Q2

REPORT INFORMATION
  Report Type: Spontaneous
  Country: FR (occurrence: FR)
  Receive Date: 20180516
  Receipt Date: 20180516
  Transmission Date: 20180711
  Serious: Yes (Hospitalization)
  Sender: FDA-Public Use
  Company Number: FR-PFIZER INC-2018197724

PATIENT
  Age: 69 Year
  Sex: Male
  Weight: 58 kg

DRUGS (6)
  1. ADENURIC [Concomitant]
     Active Substance: FEBUXOSTAT
     Indication: GOUT
     Dosage: UNK
     Route: 048
  2. SOTALOL. [Concomitant]
     Active Substance: SOTALOL
     Indication: HYPERTENSION
     Dosage: UNK
     Route: 048
  3. FOLINIC ACID [Suspect]
     Active Substance: LEUCOVORIN
     Indication: RECTAL ADENOMA
     Dosage: 260 MG, CYCLIC
     Route: 042
     Dates: start: 20161109, end: 20180221
  4. IRINOTECAN HCL [Suspect]
     Active Substance: IRINOTECAN HYDROCHLORIDE
     Indication: RECTAL ADENOMA
     Dosage: UNK
     Route: 042
     Dates: start: 20170703, end: 20180221
  5. AVASTIN [Suspect]
     Active Substance: BEVACIZUMAB
     Indication: RECTAL ADENOMA
     Dosage: 285 MG, CYCLIC
     Route: 042
     Dates: start: 20170731, end: 20180221
  6. FLUOROURACILE PFIZER [Suspect]
     Active Substance: FLUOROURACIL
     Indication: RECTAL ADENOMA
     Dosage: UNK
     Route: 042
     Dates: start: 20161109, end: 20180221

REACTIONS (1)
  - Posterior reversible encephalopathy syndrome [Recovering/Resolving]

NARRATIVE: CASE EVENT DATE: 20180304
